FAERS Safety Report 9530393 (Version 3)
Quarter: 2014Q4

REPORT INFORMATION
  Report Type: Spontaneous
  Country: US (occurrence: US)
  Receive Date: 20130918
  Receipt Date: 20141128
  Transmission Date: 20150529
  Serious: Yes (Hospitalization, Other)
  Sender: FDA-Public Use
  Company Number: US-AMGEN-USASP2013001843

PATIENT
  Age: 63 Year
  Sex: Female

DRUGS (2)
  1. ENBREL [Suspect]
     Active Substance: ETANERCEPT
     Dosage: UNK
     Route: 065
  2. ENBREL [Suspect]
     Active Substance: ETANERCEPT
     Indication: RHEUMATOID ARTHRITIS
     Dosage: 50 MG, QWK
     Route: 065
     Dates: start: 20101102

REACTIONS (32)
  - Tenderness [Recovered/Resolved]
  - Arthralgia [Recovered/Resolved]
  - Dry mouth [Not Recovered/Not Resolved]
  - Device failure [Not Recovered/Not Resolved]
  - Malaise [Recovered/Resolved]
  - Abdominal pain upper [Recovered/Resolved]
  - Osteopenia [Not Recovered/Not Resolved]
  - Blister [Recovered/Resolved]
  - Foot deformity [Not Recovered/Not Resolved]
  - Epistaxis [Recovered/Resolved]
  - Joint swelling [Recovered/Resolved]
  - Ulcer [Not Recovered/Not Resolved]
  - Pruritus [Not Recovered/Not Resolved]
  - Fungal infection [Not Recovered/Not Resolved]
  - Mass [Recovered/Resolved]
  - Pain [Not Recovered/Not Resolved]
  - Influenza [Not Recovered/Not Resolved]
  - Pulmonary mass [Not Recovered/Not Resolved]
  - Cough [Not Recovered/Not Resolved]
  - Sinus disorder [Not Recovered/Not Resolved]
  - Fall [Not Recovered/Not Resolved]
  - Nodule [Not Recovered/Not Resolved]
  - Dehydration [Recovered/Resolved]
  - Visual impairment [Not Recovered/Not Resolved]
  - Tooth infection [Not Recovered/Not Resolved]
  - Pulmonary fibrosis [Not Recovered/Not Resolved]
  - Infected skin ulcer [Recovered/Resolved]
  - Osteoporosis [Recovered/Resolved]
  - Chromaturia [Recovered/Resolved]
  - Dyspepsia [Not Recovered/Not Resolved]
  - Clostridium difficile infection [Recovered/Resolved]
  - Escherichia urinary tract infection [Recovered/Resolved]

NARRATIVE: CASE EVENT DATE: 2011
